FAERS Safety Report 24168457 (Version 5)
Quarter: 2024Q4

REPORT INFORMATION
  Report Type: Spontaneous
  Country: US (occurrence: US)
  Receive Date: 20240802
  Receipt Date: 20241119
  Transmission Date: 20250114
  Serious: No
  Sender: PFIZER
  Company Number: US-PFIZER INC-PV202400060031

PATIENT
  Age: 14 Year
  Sex: Male

DRUGS (3)
  1. GENOTROPIN [Suspect]
     Active Substance: SOMATROPIN
     Indication: Hypopituitarism
     Dosage: 1.7 MG, DAILY
  2. GENOTROPIN [Suspect]
     Active Substance: SOMATROPIN
     Indication: Growth hormone deficiency
     Dosage: 1.6 MG, ALTERNATE DAY (ALTERNATES 1.6 MG AND 1.8 MG)
  3. GENOTROPIN [Suspect]
     Active Substance: SOMATROPIN
     Dosage: 1.8 MG, ALTERNATE DAY (ALTERNATES 1.6 MG AND 1.8 MG)

REACTIONS (3)
  - Drug dose omission by device [Unknown]
  - Device information output issue [Unknown]
  - Product prescribing error [Unknown]

NARRATIVE: CASE EVENT DATE: 20240726
